FAERS Safety Report 7583957-X (Version None)
Quarter: 2011Q2

REPORT INFORMATION
  Report Type: 
  Country: None (occurrence: None)
  Receive Date: 20110628
  Receipt Date: 20110628
  Transmission Date: 20111010
  Serious: Yes (Other)
  Sender: FDA-Public Use
  Company Number: None

PATIENT
  Age: 54 Year
  Sex: Male
  Weight: 125.5 kg

DRUGS (1)
  1. CYMBALTA [Suspect]
     Indication: DEPRESSION
     Dosage: 60MG SID ORAL
     Route: 048
     Dates: start: 20090101, end: 20110615

REACTIONS (7)
  - INSOMNIA [None]
  - AMNESIA [None]
  - MYALGIA [None]
  - ACTIVITIES OF DAILY LIVING IMPAIRED [None]
  - MUSCLE SPASMS [None]
  - RHINORRHOEA [None]
  - SUICIDAL IDEATION [None]
